FAERS Safety Report 6668667-5 (Version None)
Quarter: 2010Q2

REPORT INFORMATION
  Report Type: 
  Country: None (occurrence: None)
  Receive Date: 20100402
  Receipt Date: 20100325
  Transmission Date: 20101027
  Serious: Yes (Death)
  Sender: FDA-Public Use
  Company Number: 546936

PATIENT
  Age: 63 Year
  Sex: Female

DRUGS (2)
  1. VINORELBINE TARTRATE [Suspect]
     Indication: BREAST CANCER METASTATIC
  2. (TRASTUZUMAB) [Concomitant]

REACTIONS (8)
  - CLOSTRIDIAL INFECTION [None]
  - GENERAL PHYSICAL HEALTH DETERIORATION [None]
  - LEUKOPENIA [None]
  - MEGACOLON [None]
  - MULTI-ORGAN FAILURE [None]
  - NEUTROPENIC SEPSIS [None]
  - SEPTIC SHOCK [None]
  - URINE OUTPUT DECREASED [None]
